FAERS Safety Report 6141612-7 (Version None)
Quarter: 2009Q2

REPORT INFORMATION
  Report Type: 
  Country: None (occurrence: None)
  Receive Date: 20090402
  Receipt Date: 20090327
  Transmission Date: 20091009
  Serious: Yes (Other)
  Sender: FDA-Public Use
  Company Number: B0509496A

PATIENT
  Sex: Female

DRUGS (1)
  1. CLAVULIN [Suspect]
     Dosage: 2G PER DAY
     Route: 048
     Dates: start: 20080129, end: 20080204

REACTIONS (6)
  - FATIGUE [None]
  - LOCALISED OEDEMA [None]
  - OEDEMA [None]
  - PERIORBITAL OEDEMA [None]
  - PRESYNCOPE [None]
  - RASH MACULO-PAPULAR [None]
